FAERS Safety Report 8760564 (Version 1)
Quarter: 2012Q4

REPORT INFORMATION
  Report Type: Spontaneous
  Country: US (occurrence: None)
  Receive Date: 20120829
  Receipt Date: 20120829
  Transmission Date: 20130627
  Serious: No
  Sender: FDA-Public Use
  Company Number: None

PATIENT
  Sex: Female
  Weight: 89.55 kg

DRUGS (1)
  1. PACLITAXEL (TAXOL) [Suspect]
     Dates: end: 20120821

REACTIONS (8)
  - Dyspnoea [None]
  - Chest pain [None]
  - Dyspnoea [None]
  - Back pain [None]
  - Chest discomfort [None]
  - Nausea [None]
  - Vomiting [None]
  - Breath sounds abnormal [None]
